FAERS Safety Report 18103915 (Version 2)
Quarter: 2020Q3

REPORT INFORMATION
  Report Type: Report from Study
  Country: None (occurrence: US)
  Receive Date: 20200803
  Receipt Date: 20200916
  Transmission Date: 20201103
  Serious: Yes (Other)
  Sender: FDA-Public Use
  Company Number: US-ABBVIE-20K-163-3426485-00

PATIENT
  Age: 50 Year
  Sex: Female
  Weight: 54.48 kg

DRUGS (8)
  1. METHOTREXATE. [Concomitant]
     Active Substance: METHOTREXATE
     Indication: RHEUMATOID ARTHRITIS
     Dates: end: 2020
  2. CRESTOR [Concomitant]
     Active Substance: ROSUVASTATIN CALCIUM
     Indication: BLOOD CHOLESTEROL INCREASED
  3. SYNTHROID [Concomitant]
     Active Substance: LEVOTHYROXINE SODIUM
     Indication: HYPOTHYROIDISM
  4. FOLIC ACID. [Concomitant]
     Active Substance: FOLIC ACID
     Indication: PRODUCT USED FOR UNKNOWN INDICATION
  5. HUMIRA [Suspect]
     Active Substance: ADALIMUMAB
     Indication: RHEUMATOID ARTHRITIS
     Dosage: CITRATE FREE
     Route: 058
     Dates: start: 20200520, end: 202005
  6. ETODOLAC. [Concomitant]
     Active Substance: ETODOLAC
     Indication: ARTHRALGIA
  7. HUMIRA [Suspect]
     Active Substance: ADALIMUMAB
     Dosage: CITRATE FREE
     Route: 058
     Dates: start: 20200603
  8. METHOTREXATE. [Concomitant]
     Active Substance: METHOTREXATE
     Dosage: DECREASED DOSAGE
     Dates: start: 2020

REACTIONS (7)
  - Impaired work ability [Unknown]
  - Vitreous detachment [Unknown]
  - Retinal detachment [Unknown]
  - Retinal tear [Unknown]
  - Vitreous floaters [Not Recovered/Not Resolved]
  - Temperature intolerance [Unknown]
  - Rheumatoid arthritis [Unknown]

NARRATIVE: CASE EVENT DATE: 2020
